FAERS Safety Report 7445106-8 (Version None)
Quarter: 2011Q2

REPORT INFORMATION
  Report Type: 
  Country: None (occurrence: None)
  Receive Date: 20110427
  Receipt Date: 20110427
  Transmission Date: 20111010
  Serious: No
  Sender: FDA-Public Use
  Company Number: None

PATIENT
  Sex: Male

DRUGS (1)
  1. XELODA [Suspect]
     Indication: COLON CANCER
     Dosage: XELODA 500 MG 3 BID FOR TWO WEEKS BY MOUTH
     Route: 048
     Dates: start: 20110329

REACTIONS (2)
  - CONFUSIONAL STATE [None]
  - CONDITION AGGRAVATED [None]
